FAERS Safety Report 9331594 (Version 1)
Quarter: 2013Q2

REPORT INFORMATION
  Report Type: Spontaneous
  Country: US (occurrence: None)
  Receive Date: 20130603
  Receipt Date: 20130603
  Transmission Date: 20140414
  Serious: Yes (Death, Hospitalization)
  Sender: FDA-Public Use
  Company Number: UTC-032763

PATIENT
  Age: 82 Year
  Sex: Female
  Weight: 45.45 kg

DRUGS (3)
  1. REMODULIN (10 MILLIGRAM/MILLILITERS, INJECTION FOR INFUSION) (TREPROSTINIL SODIUM) [Suspect]
     Indication: PULMONARY ARTERIAL HYPERTENSION
     Dosage: (0.087 UG/KG,1 IN 1 MIN)
     Route: 058
     Dates: start: 20091013
  2. LETAIRIS (AMBRISENTAN) (UNKNOWN) [Concomitant]
     Indication: PULMONARY ARTERIAL HYPERTENSION
     Dosage: 1 IN 1 MIN
     Dates: start: 20091013
  3. COUMADIN (WARFARIN SODIUM) (UNKNOWN) [Concomitant]

REACTIONS (2)
  - Asthenia [None]
  - Decreased appetite [None]
